FAERS Safety Report 8871256 (Version 2)
Quarter: 2012Q4

REPORT INFORMATION
  Report Type: 
  Country: JP (occurrence: JP)
  Receive Date: 20121029
  Receipt Date: 20121114
  Transmission Date: 20130627
  Serious: Yes (Hospitalization, Other)
  Sender: FDA-Public Use
  Company Number: JP-BRISTOL-MYERS SQUIBB COMPANY-17074873

PATIENT
  Age: 66 Year
  Sex: Male
  Weight: 39 kg

DRUGS (2)
  1. ABILIFY TABS [Suspect]
     Indication: SCHIZOPHRENIA
     Dosage: 3mg/d(4Aug12-30Aug12),
6mg/d(31Aug12-26Sep12),
12mg/d(27Sep12-5Oct12).
     Route: 048
     Dates: start: 20120804, end: 20121005
  2. INVEGA [Concomitant]
     Dosage: tablet

REACTIONS (6)
  - Water intoxication [Recovered/Resolved]
  - Blood creatine phosphokinase increased [Unknown]
  - Somatic hallucination [Unknown]
  - Convulsion [Unknown]
  - Loss of consciousness [Recovered/Resolved]
  - Constipation [Unknown]
